FAERS Safety Report 23147047 (Version 1)
Quarter: 2023Q4

REPORT INFORMATION
  Report Type: Spontaneous
  Country: DE (occurrence: DE)
  Receive Date: 20231106
  Receipt Date: 20231106
  Transmission Date: 20240109
  Serious: Yes (Life-Threatening, Hospitalization, Other)
  Sender: FDA-Public Use
  Company Number: DE-DCGMA-22199246

PATIENT
  Age: 75 Year
  Sex: Female
  Weight: 49 kg

DRUGS (1)
  1. SUNITINIB [Suspect]
     Active Substance: SUNITINIB
     Indication: Gastrointestinal stromal tumour
     Dosage: 1-0-0
     Route: 048
     Dates: start: 202106

REACTIONS (5)
  - Atrial fibrillation [Unknown]
  - Cardiogenic shock [Unknown]
  - Pancytopenia [Unknown]
  - Acute kidney injury [Unknown]
  - Hepatic enzyme increased [Unknown]

NARRATIVE: CASE EVENT DATE: 20220426
